FAERS Safety Report 6382971-X (Version None)
Quarter: 2009Q3

REPORT INFORMATION
  Report Type: 
  Country: None (occurrence: None)
  Receive Date: 20090930
  Receipt Date: 20090928
  Transmission Date: 20100115
  Serious: Yes (Other)
  Sender: FDA-Public Use
  Company Number: US-JNJCH-2009025847

PATIENT
  Age: 46 Year
  Sex: Female
  Weight: 74.8 kg

DRUGS (3)
  1. BENADRYL [Suspect]
     Indication: DRUG USE FOR UNKNOWN INDICATION
     Dosage: TEXT:UNSPECIFIED
     Route: 065
  2. ATENOLOL [Concomitant]
     Indication: HYPERTENSION
     Dosage: TEXT:50 AND 100 MG; 1 TABLET DAILY
     Route: 048
  3. LORATADINE [Concomitant]
     Indication: HYPERSENSITIVITY
     Route: 048
     Dates: start: 20090801

REACTIONS (1)
  - BLOOD PRESSURE INCREASED [None]
